FAERS Safety Report 14751334 (Version 1)
Quarter: 2018Q2

REPORT INFORMATION
  Report Type: Spontaneous
  Country: JP (occurrence: JP)
  Receive Date: 20180412
  Receipt Date: 20180412
  Transmission Date: 20180711
  Serious: Yes (Hospitalization, Other)
  Sender: FDA-Public Use
  Company Number: JP-VIIV HEALTHCARE LIMITED-JP2018JPN060017

PATIENT
  Age: 65 Year
  Sex: Male
  Weight: 55 kg

DRUGS (2)
  1. EPZICOM [Suspect]
     Active Substance: ABACAVIR SULFATE\LAMIVUDINE
     Indication: HIV INFECTION
     Dosage: UNK
     Route: 048
  2. KALETRA [Concomitant]
     Active Substance: LOPINAVIR\RITONAVIR
     Indication: HIV INFECTION
     Dosage: UNK

REACTIONS (7)
  - Thirst [Unknown]
  - Hyperglycaemia [Recovering/Resolving]
  - Polyglandular autoimmune syndrome type III [Unknown]
  - Muscle spasms [Unknown]
  - Weight decreased [Unknown]
  - Type 1 diabetes mellitus [Unknown]
  - Glycosylated haemoglobin increased [Unknown]
